FAERS Safety Report 8980948 (Version 4)
Quarter: 2013Q1

REPORT INFORMATION
  Report Type: Spontaneous
  Country: BR (occurrence: BR)
  Receive Date: 20121221
  Receipt Date: 20130201
  Transmission Date: 20140127
  Serious: No
  Sender: FDA-Public Use
  Company Number: PHHY2012BR113351

PATIENT
  Age: 10 Year
  Sex: Male

DRUGS (4)
  1. RITALIN LA [Suspect]
     Indication: ATTENTION DEFICIT/HYPERACTIVITY DISORDER
     Dosage: 10 MG, DAILY
     Route: 048
  2. RITALIN LA [Suspect]
     Dosage: 30 MG, DAILY
     Route: 048
  3. RITALIN LA [Suspect]
     Dosage: 40 MG, DAILY
     Route: 048
     Dates: start: 20121129
  4. RITALIN LA [Suspect]
     Dosage: 40 MG, DAILY
     Route: 048
     Dates: start: 20121130, end: 20121202

REACTIONS (5)
  - Dysentery [Unknown]
  - Abdominal pain [Recovered/Resolved]
  - Diarrhoea [Recovered/Resolved]
  - Disturbance in attention [Recovered/Resolved]
  - Drug ineffective [Recovered/Resolved]
